FAERS Safety Report 9691275 (Version 1)
Quarter: 2013Q4

REPORT INFORMATION
  Report Type: Report from Study
  Country: US (occurrence: US)
  Receive Date: 20131115
  Receipt Date: 20131115
  Transmission Date: 20140711
  Serious: Yes (Other)
  Sender: FDA-Public Use
  Company Number: US-ROCHE-1299357

PATIENT
  Age: 84 Year
  Sex: Male
  Weight: 61.29 kg

DRUGS (3)
  1. AVASTIN [Suspect]
     Indication: AGE-RELATED MACULAR DEGENERATION
     Dosage: LEFT EYE
     Route: 065
     Dates: start: 201305
  2. FINASTERIDE [Concomitant]
     Route: 048
  3. ASPIRIN [Concomitant]
     Route: 048

REACTIONS (7)
  - Eye irritation [Recovered/Resolved]
  - Eye pain [Recovered/Resolved]
  - Eye pain [Recovered/Resolved]
  - Injection site haemorrhage [Recovered/Resolved]
  - Vision blurred [Recovered/Resolved]
  - Visual impairment [Recovered/Resolved]
  - Off label use [Unknown]
